FAERS Safety Report 8088798-5 (Version None)
Quarter: 2012Q1

REPORT INFORMATION
  Report Type: 
  Country: None (occurrence: None)
  Receive Date: 20120128
  Receipt Date: 20110429
  Transmission Date: 20120608
  Serious: No
  Sender: FDA-Public Use
  Company Number: US-ABBOTT-11P-163-0722766-00

PATIENT
  Age: 67 Year
  Sex: Female

DRUGS (9)
  1. HUMIRA [Suspect]
     Indication: RHEUMATOID ARTHRITIS
     Dates: start: 20090101
  2. METHOPREDNISOLONE [Concomitant]
     Indication: RHEUMATOID ARTHRITIS
  3. HYDROCHLOROTHIAZIDE [Concomitant]
     Indication: BLOOD PRESSURE
     Dosage: 10-12.5 MG ONE DAILY
  4. PERCOCET [Concomitant]
     Indication: PAIN
  5. DICLOFENAC [Concomitant]
     Indication: RHEUMATOID ARTHRITIS
  6. HYDROXYCHLOROQUINE SULFATE [Concomitant]
     Indication: RHEUMATOID ARTHRITIS
  7. SIMVASTATIN [Concomitant]
     Indication: BLOOD CHOLESTEROL INCREASED
     Dosage: 20 MG AT BEDTIME
  8. FENTYL [Concomitant]
     Indication: PAIN
     Dosage: PATCH
  9. OMEPRAZOLE [Concomitant]
     Indication: ULCER

REACTIONS (9)
  - PAIN [None]
  - INCREASED TENDENCY TO BRUISE [None]
  - SKIN HAEMORRHAGE [None]
  - OEDEMA PERIPHERAL [None]
  - PAIN IN EXTREMITY [None]
  - BACK PAIN [None]
  - RASH [None]
  - ILL-DEFINED DISORDER [None]
  - IMPAIRED HEALING [None]
